FAERS Safety Report 24274287 (Version 2)
Quarter: 2024Q3

REPORT INFORMATION
  Report Type: Spontaneous
  Country: GB (occurrence: GB)
  Receive Date: 20240902
  Receipt Date: 20240927
  Transmission Date: 20241017
  Serious: Yes (Death, Hospitalization)
  Sender: TEVA
  Company Number: GB-TEVA-VS-3238324

PATIENT
  Age: 97 Year
  Sex: Male

DRUGS (6)
  1. DEXAMETHASONE [Suspect]
     Active Substance: DEXAMETHASONE
     Indication: COVID-19
     Route: 065
  2. LIOTHYRONINE [Concomitant]
     Active Substance: LIOTHYRONINE
     Indication: Decompensated hypothyroidism
     Dosage: TIME INTERVAL: 0.33333333 DAYS: THREE TIMES DAILY
     Route: 048
  3. REMDESIVIR [Suspect]
     Active Substance: REMDESIVIR
     Indication: COVID-19
     Route: 042
  4. LEVOTHYROXINE [Concomitant]
     Active Substance: LEVOTHYROXINE\LEVOTHYROXINE SODIUM
     Indication: Decompensated hypothyroidism
     Dosage: MAINTENANCE DOSE
     Route: 048
  5. LEVOTHYROXINE [Concomitant]
     Active Substance: LEVOTHYROXINE\LEVOTHYROXINE SODIUM
     Indication: Decompensated hypothyroidism
     Dosage: LOADING DOSE
     Route: 048
  6. HYDROCORTISONE [Concomitant]
     Active Substance: HYDROCORTISONE\HYDROCORTISONE ACETATE
     Indication: Decompensated hypothyroidism
     Route: 042

REACTIONS (2)
  - Drug ineffective [Fatal]
  - Off label use [Unknown]
